FAERS Safety Report 8904621 (Version 1)
Quarter: 2012Q4

REPORT INFORMATION
  Report Type: 
  Country: FR (occurrence: FR)
  Receive Date: 20121113
  Receipt Date: 20121113
  Transmission Date: 20130627
  Serious: Yes (Hospitalization, Other)
  Sender: FDA-Public Use
  Company Number: FR-MERCK-1211FRA004287

PATIENT
  Sex: Female

DRUGS (3)
  1. MK-0683 [Suspect]
     Indication: MYCOSIS FUNGOIDES
     Dosage: 400 mg, qd
     Dates: start: 201101, end: 201107
  2. MK-0683 [Suspect]
     Dosage: 300 mg, q5w
     Dates: start: 201107, end: 201112
  3. LEVOTHYROX [Concomitant]
     Route: 048

REACTIONS (1)
  - Renal failure [Not Recovered/Not Resolved]
